FAERS Safety Report 4727231-5 (Version None)
Quarter: 2005Q3

REPORT INFORMATION
  Report Type: 
  Country: None (occurrence: None)
  Receive Date: 20050727
  Receipt Date: 20050727
  Transmission Date: 20060218
  Serious: Yes (Hospitalization)
  Sender: FDA-Public Use
  Company Number: None

PATIENT
  Age: 82 Year
  Sex: Male
  Weight: 93 kg

DRUGS (11)
  1. IRINOTECAN [Suspect]
     Indication: ADENOCARCINOMA
     Dosage: INTRAVEN
     Route: 042
  2. BEVACIZUMAB [Suspect]
  3. FLUTICASONE PROP [Concomitant]
  4. GLIPIZIDE [Concomitant]
  5. LISINOPRIL [Concomitant]
  6. AZITHROMYCIN [Concomitant]
  7. LOPERAMIDE HCL [Concomitant]
  8. MULTI-VITAMIN [Concomitant]
  9. ASPIRIN [Concomitant]
  10. HYDROCHLOROTHIZIDE [Concomitant]
  11. MULTI-VITAMIN [Concomitant]

REACTIONS (1)
  - NEUTROPENIA [None]
